FAERS Safety Report 5729937-8 (Version None)
Quarter: 2008Q2

REPORT INFORMATION
  Report Type: 
  Country: None (occurrence: None)
  Receive Date: 20080507
  Receipt Date: 20080425
  Transmission Date: 20081010
  Serious: Yes (Other)
  Sender: FDA-Public Use
  Company Number: TW-BRISTOL-MYERS SQUIBB COMPANY-14173694

PATIENT
  Age: 72 Year
  Sex: Male

DRUGS (1)
  1. MITOMYCIN [Suspect]
     Indication: OPEN ANGLE GLAUCOMA
     Dosage: FORMULATION-INJECTION.
     Route: 031

REACTIONS (3)
  - ENDOPHTHALMITIS [None]
  - STAPHYLOCOCCAL INFECTION [None]
  - VISUAL ACUITY REDUCED [None]
